FAERS Safety Report 6583074-1 (Version None)
Quarter: 2010Q1

REPORT INFORMATION
  Report Type: 
  Country: None (occurrence: None)
  Receive Date: 20100216
  Receipt Date: 20100205
  Transmission Date: 20100710
  Serious: Yes (Hospitalization)
  Sender: FDA-Public Use
  Company Number: US-ROCHE-683427

PATIENT
  Sex: Male
  Weight: 93.4 kg

DRUGS (8)
  1. BEVACIZUMAB [Suspect]
     Indication: GLIOBLASTOMA MULTIFORME
     Route: 042
     Dates: start: 20090506, end: 20091118
  2. EVEROLIMUS [Suspect]
     Indication: GLIOBLASTOMA MULTIFORME
     Route: 048
     Dates: start: 20090715, end: 20091121
  3. TEMOZOLOMIDE [Suspect]
     Indication: GLIOBLASTOMA MULTIFORME
     Dosage: 100 MG EVERYDAY WITH RAD TX
     Route: 048
     Dates: start: 20090506, end: 20090616
  4. LEXAPRO [Concomitant]
     Dosage: FRQUENCY : 10 MG EVERY NIGHT
     Route: 048
     Dates: start: 20090320
  5. DIOVAN [Concomitant]
     Route: 048
     Dates: start: 19990101
  6. NORVASC [Concomitant]
     Route: 048
     Dates: start: 20090928
  7. DEXAMETHASONE [Concomitant]
     Route: 048
     Dates: start: 20090325
  8. KEPPRA [Concomitant]
     Route: 048
     Dates: start: 20091101

REACTIONS (1)
  - PNEUMONITIS [None]
